FAERS Safety Report 6441617-2 (Version None)
Quarter: 2009Q4

REPORT INFORMATION
  Report Type: 
  Country: None (occurrence: None)
  Receive Date: 20091116
  Receipt Date: 20091104
  Transmission Date: 20100525
  Serious: Yes (Other)
  Sender: FDA-Public Use
  Company Number: US-AMGEN-QUU370620

PATIENT
  Age: 50 Year
  Sex: Male
  Weight: 98.1 kg

DRUGS (2)
  1. ENBREL [Suspect]
     Indication: PSORIASIS
     Route: 058
     Dates: start: 20090402, end: 20091020
  2. DIOVAN [Concomitant]

REACTIONS (6)
  - ACTIVITIES OF DAILY LIVING IMPAIRED [None]
  - AMNESIA [None]
  - ASTHENIA [None]
  - DISTURBANCE IN ATTENTION [None]
  - FATIGUE [None]
  - VISION BLURRED [None]
